FAERS Safety Report 19690593 (Version 1)
Quarter: 2021Q3

REPORT INFORMATION
  Report Type: Spontaneous
  Country: CN (occurrence: CN)
  Receive Date: 20210812
  Receipt Date: 20210812
  Transmission Date: 20211014
  Serious: Yes (Other)
  Sender: FDA-Public Use
  Company Number: CN-PFIZER INC-202100978204

PATIENT
  Age: 23 Year
  Sex: Female
  Weight: 56.6 kg

DRUGS (4)
  1. OXYTOCIN. [Suspect]
     Active Substance: OXYTOCIN
     Indication: UTERINE HYPOTONUS
     Dosage: 10 IU, 1X/DAY
     Route: 030
     Dates: start: 20210702, end: 20210702
  2. CARBOPROST TROMETAMOL [Suspect]
     Active Substance: CARBOPROST TROMETHAMINE
     Indication: UTERINE HYPOTONUS
     Dosage: 250 UG, 1X/DAY
     Dates: start: 20210702, end: 20210702
  3. CARBETOCIN [Suspect]
     Active Substance: CARBETOCIN
     Indication: UTERINE HYPOTONUS
     Dosage: 100 UG, 1X/DAY
     Route: 042
     Dates: start: 20210702, end: 20210702
  4. OXYTOCIN. [Suspect]
     Active Substance: OXYTOCIN
     Dosage: 30.000 IU, 1X/DAY
     Route: 041
     Dates: start: 20210702, end: 20210702

REACTIONS (2)
  - Rash erythematous [Recovering/Resolving]
  - Pruritus [Recovering/Resolving]

NARRATIVE: CASE EVENT DATE: 20210702
